FAERS Safety Report 5518868-4 (Version None)
Quarter: 2007Q4

REPORT INFORMATION
  Report Type: 
  Country: None (occurrence: None)
  Receive Date: 20071113
  Receipt Date: 20071029
  Transmission Date: 20080405
  Serious: Yes (Other)
  Sender: FDA-Public Use
  Company Number: B0493713A

PATIENT
  Age: 43 Year
  Sex: Male

DRUGS (3)
  1. PAROXETINE HCL [Suspect]
     Indication: MAJOR DEPRESSION
     Dosage: ORAL
     Route: 048
  2. AMOXAPINE [Suspect]
     Indication: MAJOR DEPRESSION
     Dosage: ORAL
     Route: 048
  3. CLOMIPRAMINE HCL [Suspect]
     Indication: MAJOR DEPRESSION

REACTIONS (7)
  - ACTIVATION SYNDROME [None]
  - AGGRESSION [None]
  - CONDITION AGGRAVATED [None]
  - DEPRESSION [None]
  - DRUG INTERACTION [None]
  - INSOMNIA [None]
  - IRRITABILITY [None]
